FAERS Safety Report 5503931-4 (Version None)
Quarter: 2007Q4

REPORT INFORMATION
  Report Type: 
  Country: None (occurrence: None)
  Receive Date: 20071101
  Receipt Date: 20071023
  Transmission Date: 20080405
  Serious: Yes (Other)
  Sender: FDA-Public Use
  Company Number: US-ROCHE-493269

PATIENT
  Age: 41 Year
  Sex: Female

DRUGS (3)
  1. PEGASYS [Suspect]
     Route: 065
     Dates: start: 20070130, end: 20070904
  2. RIBAVIRIN [Suspect]
     Route: 065
     Dates: start: 20070130, end: 20070904
  3. ANTIDEPRESSANT NOS [Concomitant]

REACTIONS (25)
  - ALOPECIA [None]
  - ANGER [None]
  - ANXIETY [None]
  - BEREAVEMENT REACTION [None]
  - CRYING [None]
  - DEPRESSION [None]
  - DERMATITIS [None]
  - DIZZINESS [None]
  - DRY SKIN [None]
  - DYSPNOEA [None]
  - FATIGUE [None]
  - HYPOMANIA [None]
  - INCREASED APPETITE [None]
  - INFLAMMATION [None]
  - MANIA [None]
  - MENORRHAGIA [None]
  - MENTAL IMPAIRMENT [None]
  - METRORRHAGIA [None]
  - NO THERAPEUTIC RESPONSE [None]
  - ORAL HERPES [None]
  - PHOTOPHOBIA [None]
  - PRURITUS [None]
  - SWELLING FACE [None]
  - WEIGHT DECREASED [None]
  - WEIGHT INCREASED [None]
